FAERS Safety Report 6763854-X (Version None)
Quarter: 2010Q2

REPORT INFORMATION
  Report Type: 
  Country: None (occurrence: None)
  Receive Date: 20100610
  Receipt Date: 20100601
  Transmission Date: 20101027
  Serious: Yes (Other)
  Sender: FDA-Public Use
  Company Number: JP-PFIZER INC-2010068772

PATIENT
  Age: 62 Year
  Sex: Male

DRUGS (1)
  1. ALDACTONE [Suspect]
     Dosage: 50 MBQ, 1X/DAY
     Route: 048
     Dates: start: 20100531

REACTIONS (1)
  - CHROMATURIA [None]
